FAERS Safety Report 8386191-9 (Version None)
Quarter: 2012Q2

REPORT INFORMATION
  Report Type: 
  Country: None (occurrence: None)
  Receive Date: 20120525
  Receipt Date: 20120522
  Transmission Date: 20120825
  Serious: Yes (Other)
  Sender: FDA-Public Use
  Company Number: US-PERRIGO-12US004279

PATIENT
  Sex: Female
  Weight: 54.422 kg

DRUGS (2)
  1. ANTI NAUSEA LIQ 291 [Suspect]
     Indication: NAUSEA
     Dosage: 5 TO 7.5 ML, SINGLE
     Route: 048
     Dates: start: 20120503, end: 20120503
  2. VITAMIN TAB [Concomitant]
     Indication: SUPPLEMENTATION THERAPY
     Dosage: UNK, UNKNOWN
     Route: 065

REACTIONS (6)
  - PAIN [None]
  - PRURITUS [None]
  - HYPERSENSITIVITY [None]
  - JOINT SWELLING [None]
  - URTICARIA [None]
  - ERYTHEMA [None]
